FAERS Safety Report 24026120 (Version 1)
Quarter: 2024Q2

REPORT INFORMATION
  Report Type: Report from Study
  Country: US (occurrence: US)
  Receive Date: 20240628
  Receipt Date: 20240628
  Transmission Date: 20240716
  Serious: No
  Sender: FDA-Public Use
  Company Number: US-ROCHE-3519949

PATIENT
  Age: 70 Year
  Sex: Female

DRUGS (7)
  1. ALECTINIB [Suspect]
     Active Substance: ALECTINIB
     Indication: Lung neoplasm malignant
     Dosage: YES
     Route: 048
  2. ALECTINIB [Concomitant]
     Active Substance: ALECTINIB
     Route: 048
  3. DEMANNOSE [Concomitant]
     Active Substance: DEMANNOSE
     Route: 048
  4. LYCOPENE [Concomitant]
     Active Substance: LYCOPENE
     Route: 048
  5. SELENIUM [Concomitant]
     Active Substance: SELENIUM
     Route: 048
  6. VITAMIN C [Concomitant]
     Active Substance: ASCORBIC ACID
  7. VITAMIN D3;VITAMIN K2 [Concomitant]
     Route: 048

REACTIONS (1)
  - COVID-19 [Recovered/Resolved]
